FAERS Safety Report 4323357-9 (Version None)
Quarter: 2004Q1

REPORT INFORMATION
  Report Type: 
  Country: None (occurrence: None)
  Receive Date: 20040322
  Receipt Date: 20040311
  Transmission Date: 20041129
  Serious: Yes (Hospitalization, Other)
  Sender: FDA-Public Use
  Company Number: 2003-10-2920

PATIENT
  Age: 54 Year
  Sex: Female
  Weight: 48 kg

DRUGS (29)
  1. REBETOL [Suspect]
     Indication: HEPATITIS C
     Dosage: SEE IMAGE
     Route: 048
     Dates: start: 20030814, end: 20030910
  2. REBETOL [Suspect]
     Indication: HEPATITIS C
     Dosage: SEE IMAGE
     Route: 048
     Dates: start: 20030814, end: 20030913
  3. REBETOL [Suspect]
     Indication: HEPATITIS C
     Dosage: SEE IMAGE
     Route: 048
     Dates: start: 20030911, end: 20030913
  4. INTRON A [Suspect]
     Indication: HEPATITIS C
     Dosage: SEE IMAGE
     Route: 030
     Dates: start: 20030814, end: 20030827
  5. INTRON A [Suspect]
     Indication: HEPATITIS C
     Dosage: SEE IMAGE
     Route: 030
     Dates: start: 20030814, end: 20030911
  6. INTRON A [Suspect]
     Indication: HEPATITIS C
     Dosage: SEE IMAGE
     Route: 030
     Dates: start: 20030828, end: 20030911
  7. URSODEOXYCHOLIC ACID [Concomitant]
  8. FURSEOMDIDE [Concomitant]
  9. LOXOPROFEN SODIUM [Concomitant]
  10. SUCRALFATE [Concomitant]
  11. TRIAZOLAM [Concomitant]
  12. ALLOPURINOL [Concomitant]
  13. SENNOSIDES [Concomitant]
  14. POTASSIUM GLUCONATE [Concomitant]
  15. MAGNESIUM OXIDE [Concomitant]
  16. ALPRAZOLAM [Concomitant]
  17. ZOLMITRAIPTAN [Concomitant]
  18. PRAZEPAM [Concomitant]
  19. ZOLPIDEM [Concomitant]
  20. COLCHICINE [Concomitant]
  21. OMEPRAZOLE [Concomitant]
  22. BROMAZEPAM [Concomitant]
  23. ASPARTATE POTASSIUM [Concomitant]
  24. CEFEMETAZOLE SODIUM [Concomitant]
  25. POTASSIUM CANRENOATE [Concomitant]
  26. CEFOPERAZONE/SULBACTAM [Concomitant]
  27. ALBUMIN (HUMAN) [Concomitant]
  28. MONOAMMONIUM GLYCYRRHIZINATE [Concomitant]
  29. UNSPECIFIED THERAPEUTIC AGENT [Concomitant]

REACTIONS (12)
  - ANAEMIA [None]
  - ANXIETY DISORDER [None]
  - CONDITION AGGRAVATED [None]
  - CYSTITIS [None]
  - DEHYDRATION [None]
  - DIZZINESS [None]
  - FALL [None]
  - HYPOKALAEMIA [None]
  - HYPOPROTEINAEMIA [None]
  - HYPOTENSION [None]
  - THROMBOCYTOPENIA [None]
  - URATE NEPHROPATHY [None]
